FAERS Safety Report 8077035-3 (Version None)
Quarter: 2012Q1

REPORT INFORMATION
  Report Type: 
  Country: None (occurrence: None)
  Receive Date: 20120127
  Receipt Date: 20120119
  Transmission Date: 20120608
  Serious: Yes (Other)
  Sender: FDA-Public Use
  Company Number: PHHY2012CA002822

PATIENT
  Sex: Female

DRUGS (1)
  1. ZOLEDRONOC ACID [Suspect]
     Indication: OSTEOPOROSIS
     Dosage: UNK
     Route: 042
     Dates: start: 20120109

REACTIONS (10)
  - MIGRAINE [None]
  - NAUSEA [None]
  - PHOTOPHOBIA [None]
  - PYREXIA [None]
  - ARTHRITIS [None]
  - FAECAL INCONTINENCE [None]
  - MOVEMENT DISORDER [None]
  - FIBROMYALGIA [None]
  - BACK PAIN [None]
  - ARTHRALGIA [None]
